FAERS Safety Report 5157074-2 (Version None)
Quarter: 2006Q4

REPORT INFORMATION
  Report Type: 
  Country: None (occurrence: None)
  Receive Date: 20061127
  Receipt Date: 20060119
  Transmission Date: 20070319
  Serious: Yes (Life-Threatening, Hospitalization, Other)
  Sender: FDA-Public Use
  Company Number: PHHO2006CN01166

PATIENT
  Age: 7 Year
  Sex: Male
  Weight: 26 kg

DRUGS (1)
  1. EXJADE [Suspect]
     Indication: BLOOD IRON INCREASED
     Dosage: 500 MG DAILY
     Route: 048
     Dates: start: 20051215, end: 20060107

REACTIONS (5)
  - ABDOMINAL PAIN [None]
  - ANAEMIA [None]
  - GASTRIC HAEMORRHAGE [None]
  - GASTRITIS HAEMORRHAGIC [None]
  - HAEMATEMESIS [None]
